FAERS Safety Report 8976532 (Version 1)
Quarter: 2012Q4

REPORT INFORMATION
  Report Type: 
  Country: US (occurrence: US)
  Receive Date: 20121219
  Receipt Date: 20121219
  Transmission Date: 20130627
  Serious: No
  Sender: FDA-Public Use
  Company Number: US-AMGEN-USASP2012056520

PATIENT
  Age: 66 Year
  Sex: Female
  Weight: 57.14 kg

DRUGS (3)
  1. PROLIA [Suspect]
     Indication: OSTEOPOROSIS POSTMENOPAUSAL
     Dosage: 60 mg, q6mo
     Route: 058
     Dates: start: 20120823
  2. PROLIA [Suspect]
  3. SYNTHROID [Concomitant]
     Dosage: 75 mg, UNK
     Route: 048

REACTIONS (13)
  - Abdominal discomfort [Unknown]
  - Abdominal distension [Unknown]
  - Abdominal tenderness [Unknown]
  - Eructation [Unknown]
  - Hyperchlorhydria [Unknown]
  - Chest discomfort [Unknown]
  - Cough [Unknown]
  - Nasopharyngitis [Unknown]
  - Adverse reaction [Unknown]
  - Pain in jaw [Unknown]
  - Musculoskeletal discomfort [Unknown]
  - Dyspepsia [Unknown]
  - Flatulence [Unknown]
